FAERS Safety Report 7487078-6 (Version None)
Quarter: 2011Q2

REPORT INFORMATION
  Report Type: 
  Country: None (occurrence: None)
  Receive Date: 20110518
  Receipt Date: 20110505
  Transmission Date: 20111010
  Serious: Yes (Hospitalization)
  Sender: FDA-Public Use
  Company Number: DE-RANBAXY-2011RR-44416

PATIENT
  Age: 50 Year
  Sex: Female
  Weight: 93 kg

DRUGS (6)
  1. CARBAMAZEPINE [Suspect]
     Indication: RESTLESS LEGS SYNDROME
     Dosage: 100 MG, QD
     Route: 048
     Dates: start: 20101201, end: 20110228
  2. IBUPROFEN [Suspect]
     Indication: HEADACHE
     Dosage: 800 MG, BID
     Route: 048
     Dates: start: 20010101, end: 20110304
  3. TRAMADOL HCL [Suspect]
     Indication: BACK PAIN
     Dosage: 100 MG, QD
     Route: 048
     Dates: start: 20060101, end: 20110304
  4. METOPROLOL SUCCINATE [Concomitant]
     Indication: HYPERTENSION
     Dosage: 95 MG, QD
     Route: 048
     Dates: start: 20010101
  5. LISINOPRIL [Suspect]
     Indication: HYPERTENSION
     Dosage: 5 MG, QD
     Route: 048
     Dates: start: 20060101, end: 20110304
  6. FEMOSTON [Suspect]
     Indication: MENOPAUSE
     Dosage: 1 DF, QD
     Route: 048
     Dates: start: 19990101, end: 20110304

REACTIONS (1)
  - LIVER DISORDER [None]
